FAERS Safety Report 10877351 (Version 2)
Quarter: 2015Q1

REPORT INFORMATION
  Report Type: Spontaneous
  Country: US (occurrence: US)
  Receive Date: 20150302
  Receipt Date: 20150316
  Transmission Date: 20150721
  Serious: Yes (Other)
  Sender: FDA-Public Use
  Company Number: US-BEH-2015049150

PATIENT
  Age: 46 Year
  Sex: Female
  Weight: 77 kg

DRUGS (28)
  1. SODIUM CHLORIDE. [Concomitant]
     Active Substance: SODIUM CHLORIDE
  2. FLUOXETINE [Concomitant]
     Active Substance: FLUOXETINE\FLUOXETINE HYDROCHLORIDE
  3. AVELOX [Concomitant]
     Active Substance: MOXIFLOXACIN HYDROCHLORIDE
  4. ACETAMINOPHEN. [Concomitant]
     Active Substance: ACETAMINOPHEN
  5. PERCOCET [Concomitant]
     Active Substance: ACETAMINOPHEN\OXYCODONE HYDROCHLORIDE
  6. LORAZEPAM. [Concomitant]
     Active Substance: LORAZEPAM
  7. ASPIRIN. [Concomitant]
     Active Substance: ASPIRIN
  8. PREDNISONE. [Concomitant]
     Active Substance: PREDNISONE
  9. KETOCONAZOLE. [Concomitant]
     Active Substance: KETOCONAZOLE
  10. PROAIR HFA [Concomitant]
     Active Substance: ALBUTEROL SULFATE
  11. DIAZEPAM. [Concomitant]
     Active Substance: DIAZEPAM
  12. MULTIVITAMIN [Concomitant]
     Active Substance: VITAMINS
  13. SPIRIVA [Concomitant]
     Active Substance: TIOTROPIUM BROMIDE MONOHYDRATE
  14. ZEMAIRA [Suspect]
     Active Substance: .ALPHA.1-PROTEINASE INHIBITOR HUMAN
     Indication: ALPHA-1 ANTI-TRYPSIN DEFICIENCY
     Dosage: 2011
     Route: 042
  15. DIPHENHYDRAMINE [Concomitant]
     Active Substance: DIPHENHYDRAMINE
  16. DOXYCYCLINE. [Concomitant]
     Active Substance: DOXYCYCLINE
  17. OXYGEN. [Concomitant]
     Active Substance: OXYGEN
  18. LISINOPRIL. [Concomitant]
     Active Substance: LISINOPRIL
  19. EPIPEN [Concomitant]
     Active Substance: EPINEPHRINE
  20. IBUPROFEN. [Concomitant]
     Active Substance: IBUPROFEN
  21. COREG [Concomitant]
     Active Substance: CARVEDILOL
  22. CEFUROXIME. [Concomitant]
     Active Substance: CEFUROXIME
  23. CIPROFLOXACIN. [Concomitant]
     Active Substance: CIPROFLOXACIN
  24. HEPARIN [Concomitant]
     Active Substance: HEPARIN SODIUM
  25. ADVAIR HFA [Concomitant]
     Active Substance: FLUTICASONE PROPIONATE\SALMETEROL XINAFOATE
  26. LMX [Concomitant]
     Active Substance: LIDOCAINE
  27. AMOXICILLIN. [Concomitant]
     Active Substance: AMOXICILLIN
  28. ALBUTEROL. [Concomitant]
     Active Substance: ALBUTEROL

REACTIONS (3)
  - Orthostatic hypotension [Not Recovered/Not Resolved]
  - Dizziness [Not Recovered/Not Resolved]
  - Chronic obstructive pulmonary disease [Not Recovered/Not Resolved]

NARRATIVE: CASE EVENT DATE: 201502
